FAERS Safety Report 9260227 (Version 1)
Quarter: 2013Q2

REPORT INFORMATION
  Report Type: Spontaneous
  Country: US (occurrence: US)
  Receive Date: 20130429
  Receipt Date: 20130429
  Transmission Date: 20140414
  Serious: No
  Sender: FDA-Public Use
  Company Number: US-B.I. PHARMACEUTICALS,INC./RIDGEFIELD-2013-BI-08874BP

PATIENT
  Sex: Male

DRUGS (3)
  1. MIRAPEX [Suspect]
     Indication: RESTLESS LEGS SYNDROME
     Route: 048
     Dates: start: 1998, end: 20121124
  2. MIRAPEX [Suspect]
     Route: 048
     Dates: start: 20121125, end: 20130228
  3. MIRAPEX [Suspect]
     Route: 048
     Dates: start: 20130301

REACTIONS (17)
  - Obsessive-compulsive disorder [Not Recovered/Not Resolved]
  - Excessive exercise [Not Recovered/Not Resolved]
  - Dependence [Not Recovered/Not Resolved]
  - Dependence [Not Recovered/Not Resolved]
  - Abnormal loss of weight [Unknown]
  - Social problem [Not Recovered/Not Resolved]
  - Anhedonia [Not Recovered/Not Resolved]
  - Fatigue [Not Recovered/Not Resolved]
  - Memory impairment [Not Recovered/Not Resolved]
  - Muscle spasms [Not Recovered/Not Resolved]
  - Gait disturbance [Not Recovered/Not Resolved]
  - Insomnia [Not Recovered/Not Resolved]
  - Somnolence [Recovered/Resolved]
  - Malaise [Unknown]
  - Tardive dyskinesia [Unknown]
  - Depression [Unknown]
  - Urinary incontinence [Recovered/Resolved]
